FAERS Safety Report 6196123-X (Version None)
Quarter: 2009Q2

REPORT INFORMATION
  Report Type: 
  Country: None (occurrence: None)
  Receive Date: 20090520
  Receipt Date: 20090508
  Transmission Date: 20091009
  Serious: Yes (Other)
  Sender: FDA-Public Use
  Company Number: JP-PFIZER INC-2009205738

PATIENT

DRUGS (2)
  1. VFEND [Suspect]
     Dosage: FREQUENCY: 2X/DAY, EVERY DAY;
     Route: 048
     Dates: start: 20090416
  2. FINIBAX [Concomitant]
     Route: 042
     Dates: end: 20090420

REACTIONS (2)
  - HALLUCINATION [None]
  - INAPPROPRIATE ANTIDIURETIC HORMONE SECRETION [None]
